FAERS Safety Report 5671411-1 (Version None)
Quarter: 2008Q1

REPORT INFORMATION
  Report Type: 
  Country: None (occurrence: None)
  Receive Date: 20080318
  Receipt Date: 20080306
  Transmission Date: 20080703
  Serious: Yes (Other)
  Sender: FDA-Public Use
  Company Number: SE-PFIZER INC-2008022268

PATIENT
  Sex: Female

DRUGS (1)
  1. DALACIN OVULOS [Suspect]
     Route: 048
     Dates: start: 20071103, end: 20071209

REACTIONS (8)
  - ABDOMINAL PAIN [None]
  - ABNORMAL FAECES [None]
  - ENTERITIS [None]
  - HAEMATOCHEZIA [None]
  - MUCOUS STOOLS [None]
  - POLLAKIURIA [None]
  - URTICARIA [None]
  - VULVOVAGINAL MYCOTIC INFECTION [None]
